FAERS Safety Report 5020015-2 (Version None)
Quarter: 2006Q2

REPORT INFORMATION
  Report Type: 
  Country: None (occurrence: None)
  Receive Date: 20060601
  Receipt Date: 20060529
  Transmission Date: 20061013
  Serious: Yes (Life-Threatening, Hospitalization)
  Sender: FDA-Public Use
  Company Number: DE-2006-002626

PATIENT
  Age: 48 Year
  Sex: Female

DRUGS (7)
  1. YASMIN 30 (21) DROSPIRENONE, ETHINHLESTRADIOL) FILM TABLET [Suspect]
     Indication: ALOPECIA
     Dosage: ORAL
     Route: 048
     Dates: start: 20051001, end: 20051124
  2. ACE INHIBITOR NOS [Suspect]
  3. ESIDRIX [Concomitant]
  4. NORVASC [Concomitant]
  5. AMLODIPINE BESYLATE [Concomitant]
  6. CATAPRESAN 150 (CLONIDINE) [Concomitant]
  7. NEXIUM [Concomitant]

REACTIONS (5)
  - ANAPHYLACTIC REACTION [None]
  - ANGIONEUROTIC OEDEMA [None]
  - ASTHENIA [None]
  - EPIGLOTTIC OEDEMA [None]
  - FOOD ALLERGY [None]
